FAERS Safety Report 15356532 (Version 1)
Quarter: 2018Q3

REPORT INFORMATION
  Report Type: Spontaneous
  Country: US (occurrence: US)
  Receive Date: 20180830
  Receipt Date: 20180830
  Transmission Date: 20181010
  Serious: Yes (Life-Threatening, Other)
  Sender: FDA-Public Use
  Company Number: None

PATIENT
  Age: 70 Year
  Sex: Male
  Weight: 94.5 kg

DRUGS (11)
  1. VALSARTAN 320MG [Suspect]
     Active Substance: VALSARTAN
     Indication: BLOOD PRESSURE MEASUREMENT
     Dosage: ?          QUANTITY:1 TABLET(S);?
     Route: 048
     Dates: start: 20060104, end: 20180722
  2. FISH OIL [Concomitant]
     Active Substance: FISH OIL
  3. VITAMIN D2 [Concomitant]
     Active Substance: ERGOCALCIFEROL
  4. ZANTAC [Concomitant]
     Active Substance: RANITIDINE HYDROCHLORIDE
  5. METAMUCIL [Concomitant]
     Active Substance: PLANTAGO SEED
  6. AMLODIPINE [Concomitant]
     Active Substance: AMLODIPINE BESYLATE
  7. ASA [Concomitant]
     Active Substance: ASPIRIN
  8. CINNAMON. [Concomitant]
     Active Substance: CINNAMON
  9. MULT. VITAMIN [Suspect]
     Active Substance: VITAMINS
  10. IRBESARTAN. [Concomitant]
     Active Substance: IRBESARTAN
  11. ZOCOR [Concomitant]
     Active Substance: SIMVASTATIN

REACTIONS (1)
  - Leiomyosarcoma [None]

NARRATIVE: CASE EVENT DATE: 20180206
